FAERS Safety Report 6406481-6 (Version None)
Quarter: 2009Q4

REPORT INFORMATION
  Report Type: 
  Country: None (occurrence: None)
  Receive Date: 20091019
  Receipt Date: 20091015
  Transmission Date: 20100525
  Serious: Yes (Hospitalization)
  Sender: FDA-Public Use
  Company Number: JP-CELGENEUS-087-C5013-09081897

PATIENT
  Sex: Male
  Weight: 59.8 kg

DRUGS (16)
  1. CC-5013 [Suspect]
     Route: 048
     Dates: start: 20090804, end: 20090827
  2. DEXAMETHASONE [Suspect]
     Indication: MULTIPLE MYELOMA
     Route: 048
     Dates: start: 20090804, end: 20090827
  3. ASPIRIN [Concomitant]
     Indication: THROMBOSIS PROPHYLAXIS
     Route: 048
     Dates: start: 20090804
  4. PREDONINE [Concomitant]
     Route: 048
     Dates: start: 20090608, end: 20090825
  5. LOXONIN [Concomitant]
     Route: 048
     Dates: start: 20090514, end: 20090825
  6. ALFAROL [Concomitant]
     Indication: OSTEOPOROSIS
     Route: 048
     Dates: start: 20090514, end: 20090825
  7. SELBEX [Concomitant]
     Route: 048
     Dates: start: 20090514, end: 20090825
  8. AMARYL [Concomitant]
     Indication: DIABETES MELLITUS
     Route: 048
     Dates: start: 20050101, end: 20090825
  9. DIOVAN [Concomitant]
     Indication: HYPERTENSION
     Route: 048
     Dates: start: 20050101
  10. LASIX [Concomitant]
     Indication: HYPERTENSION
     Route: 048
     Dates: start: 20050101, end: 20090825
  11. ALOSENN [Concomitant]
     Indication: CONSTIPATION
     Route: 048
     Dates: start: 20090818, end: 20090824
  12. SEIBULE [Concomitant]
     Indication: DIABETES MELLITUS
     Route: 048
     Dates: start: 20050101, end: 20090825
  13. SANCOBA [Concomitant]
     Indication: EYE DISORDER
     Dates: start: 20090625, end: 20090825
  14. KARY [Concomitant]
     Dates: start: 20090625, end: 20090825
  15. PRANOPROFEN [Concomitant]
     Indication: CATARACT OPERATION
     Dates: start: 20090724, end: 20090825
  16. RITALIN [Concomitant]
     Indication: NARCOLEPSY
     Dosage: 10-20MG
     Route: 048
     Dates: start: 20040101, end: 20090825

REACTIONS (1)
  - NEOPLASM PROGRESSION [None]
